FAERS Safety Report 6756007-2 (Version None)
Quarter: 2010Q2

REPORT INFORMATION
  Report Type: 
  Country: None (occurrence: None)
  Receive Date: 20100524
  Receipt Date: 20100202
  Transmission Date: 20101027
  Serious: Yes (Hospitalization)
  Sender: FDA-Public Use
  Company Number: 006126

PATIENT
  Sex: Female
  Weight: 51.7 kg

DRUGS (4)
  1. CIMZIA [Suspect]
     Indication: CROHN'S DISEASE
     Dosage: (SUBCUTANEOUS)
     Route: 058
     Dates: start: 20080801
  2. PENTASA [Concomitant]
  3. ENTOCORT EC [Concomitant]
  4. AZATHIOPRINE [Concomitant]

REACTIONS (6)
  - APHTHOUS STOMATITIS [None]
  - CROHN'S DISEASE [None]
  - DRY MOUTH [None]
  - INTESTINAL OBSTRUCTION [None]
  - MOUTH HAEMORRHAGE [None]
  - VIRAL INFECTION [None]
